FAERS Safety Report 5523382-6 (Version None)
Quarter: 2007Q4

REPORT INFORMATION
  Report Type: 
  Country: None (occurrence: None)
  Receive Date: 20071121
  Receipt Date: 20071116
  Transmission Date: 20080405
  Serious: Yes (Death)
  Sender: FDA-Public Use
  Company Number: B0496410A

PATIENT
  Age: 42 Year
  Sex: Male

DRUGS (3)
  1. ARIXTRA [Suspect]
     Indication: MYOCARDIAL INFARCTION
     Route: 042
     Dates: start: 20060101
  2. HEPARIN [Concomitant]
  3. THROMBOLYTIC AGENT [Concomitant]

REACTIONS (2)
  - ACTIVATED PARTIAL THROMBOPLASTIN TIME SHORTENED [None]
  - DEATH [None]
